FAERS Safety Report 25815833 (Version 1)
Quarter: 2025Q3

REPORT INFORMATION
  Report Type: Spontaneous
  Country: US (occurrence: US)
  Receive Date: 20250918
  Receipt Date: 20250918
  Transmission Date: 20251021
  Serious: Yes (Other)
  Sender: CATALYST PHARMA
  Company Number: US-CATALYSTPHARMACEUTICALPARTNERS-US-CATA-24-01136

PATIENT

DRUGS (3)
  1. FYCOMPA [Suspect]
     Active Substance: PERAMPANEL
     Indication: Seizure
     Dosage: 2 MG DAILY
     Route: 048
     Dates: start: 2024, end: 2024
  2. FYCOMPA [Suspect]
     Active Substance: PERAMPANEL
     Indication: Partial seizures
     Dosage: 4 MG DAILY
     Route: 048
     Dates: start: 2024, end: 202410
  3. UNSPECIFIED INGREDIENT [Suspect]
     Active Substance: UNSPECIFIED INGREDIENT
     Indication: Product used for unknown indication
     Route: 065
     Dates: start: 202410

REACTIONS (2)
  - Homicidal ideation [Recovered/Resolved]
  - Suicide attempt [Recovered/Resolved]

NARRATIVE: CASE EVENT DATE: 20241001
